FAERS Safety Report 20844303 (Version 1)
Quarter: 2022Q2

REPORT INFORMATION
  Report Type: Spontaneous
  Country: DE (occurrence: DE)
  Receive Date: 20220518
  Receipt Date: 20220518
  Transmission Date: 20220720
  Serious: Yes (Hospitalization, Other)
  Sender: FDA-Public Use
  Company Number: DE-PFIZER INC-202200686150

PATIENT
  Age: 30 Year
  Sex: Female
  Weight: 47 kg

DRUGS (1)
  1. FRAGMIN [Suspect]
     Active Substance: DALTEPARIN SODIUM
     Indication: Uterine atony
     Dosage: 5000 IU

REACTIONS (4)
  - Peritonitis [Unknown]
  - Haemorrhage [Unknown]
  - Haemorrhagic diathesis [Unknown]
  - Off label use [Unknown]
